FAERS Safety Report 11518061 (Version 2)
Quarter: 2015Q4

REPORT INFORMATION
  Report Type: Spontaneous
  Country: US (occurrence: US)
  Receive Date: 20150917
  Receipt Date: 20151021
  Transmission Date: 20160304
  Serious: No
  Sender: FDA-Public Use
  Company Number: US-B.I. PHARMACEUTICALS,INC./RIDGEFIELD-2015-BI-48775BP

PATIENT
  Sex: Female
  Weight: 54 kg

DRUGS (5)
  1. COMBIVENT [Suspect]
     Active Substance: ALBUTEROL SULFATE\IPRATROPIUM BROMIDE
     Dosage: STRENGTH: 20MCG/100 MCG; DAILY DOSE: 80MCG/400 MCG
     Route: 055
     Dates: start: 2015
  2. PROPRANONOL [Concomitant]
     Indication: HYPERTENSION
     Dosage: 40 MG
     Route: 048
  3. ENALAPRILL HCTZ [Concomitant]
     Indication: HYPERTENSION
     Dosage: STRENGTH: 10/25 MG; DAILY DOSE: 10/25 MG
     Route: 048
  4. COMBIVENT [Suspect]
     Active Substance: ALBUTEROL SULFATE\IPRATROPIUM BROMIDE
     Indication: CHRONIC OBSTRUCTIVE PULMONARY DISEASE
     Dosage: STRENGTH: 20MCG/100 MCG; DAILY DOSE: 40MCG/200 MCG
     Route: 055
     Dates: start: 2013, end: 2015
  5. NORCO [Concomitant]
     Active Substance: ACETAMINOPHEN\HYDROCODONE BITARTRATE
     Indication: PAIN
     Dosage: STRENGTH: 10/325 MG
     Route: 048

REACTIONS (4)
  - Chest pain [Unknown]
  - Asthenia [Unknown]
  - Product quality issue [Unknown]
  - Dyspnoea [Recovered/Resolved]

NARRATIVE: CASE EVENT DATE: 2015
